FAERS Safety Report 20166081 (Version 3)
Quarter: 2022Q1

REPORT INFORMATION
  Report Type: Report from Study
  Country: US (occurrence: US)
  Receive Date: 20211209
  Receipt Date: 20220202
  Transmission Date: 20220424
  Serious: Yes (Other)
  Sender: FDA-Public Use
  Company Number: US-GALAXOSMITHKLINE-US2021GSK251483

PATIENT
  Age: 0 Year
  Sex: Male
  Weight: 7.166 kg

DRUGS (9)
  1. BELIMUMAB [Suspect]
     Active Substance: BELIMUMAB
     Indication: Systemic lupus erythematosus
     Dosage: 200 MG, WE
     Route: 063
     Dates: start: 20200723, end: 20201126
  2. BELIMUMAB [Suspect]
     Active Substance: BELIMUMAB
     Dosage: 200 MG
     Route: 058
     Dates: start: 20210126, end: 20210802
  3. LAMICTAL [Suspect]
     Active Substance: LAMOTRIGINE
     Indication: Generalised anxiety disorder
     Dosage: 150 MG, BID
     Route: 063
  4. FOLATE SODIUM [Suspect]
     Active Substance: FOLATE SODIUM
     Indication: Product used for unknown indication
     Dosage: UNK
     Route: 063
  5. PLAQUENIL [Suspect]
     Active Substance: HYDROXYCHLOROQUINE SULFATE
     Indication: Prophylaxis
     Dosage: UNK
     Route: 063
  6. VITAMIN B6 [Suspect]
     Active Substance: PYRIDOXINE HYDROCHLORIDE
     Indication: Product used for unknown indication
     Dosage: UNK
     Route: 063
  7. CYTOTEC [Concomitant]
     Active Substance: MISOPROSTOL
     Indication: Induced labour
     Dosage: UNK
     Route: 063
     Dates: start: 20210717
  8. MAGNESIUM [Concomitant]
     Active Substance: MAGNESIUM
     Indication: Induced labour
     Dosage: UNK
     Route: 063
     Dates: start: 20210717
  9. PITOCIN [Concomitant]
     Active Substance: OXYTOCIN
     Indication: Induced labour
     Dosage: UNK
     Route: 063
     Dates: start: 20210718

REACTIONS (5)
  - Acquired plagiocephaly [Not Recovered/Not Resolved]
  - Torticollis [Not Recovered/Not Resolved]
  - Premature baby [Unknown]
  - Foetal exposure during pregnancy [Unknown]
  - Exposure via breast milk [Unknown]

NARRATIVE: CASE EVENT DATE: 20211118
